FAERS Safety Report 18295700 (Version 1)
Quarter: 2020Q3

REPORT INFORMATION
  Report Type: Spontaneous
  Country: US (occurrence: US)
  Receive Date: 20200922
  Receipt Date: 20200922
  Transmission Date: 20201103
  Serious: No
  Sender: FDA-Public Use
  Company Number: US-AMARIN PHARMA, INC.-2020AMR000315

PATIENT
  Age: 60 Year
  Sex: Male
  Weight: 104.42 kg

DRUGS (6)
  1. OZEMPIC [Concomitant]
     Active Substance: SEMAGLUTIDE
     Indication: DIABETES MELLITUS
     Dates: start: 201909
  2. VASCEPA [Suspect]
     Active Substance: ICOSAPENT ETHYL
     Indication: BLOOD TRIGLYCERIDES ABNORMAL
     Route: 048
  3. ACTOS [Concomitant]
     Active Substance: PIOGLITAZONE HYDROCHLORIDE
     Indication: DIABETES MELLITUS
     Dosage: 1/2 PILL
     Route: 048
     Dates: start: 2018
  4. LISINOPRIL. [Concomitant]
     Active Substance: LISINOPRIL
     Indication: HYPERTENSION
     Route: 048
     Dates: start: 201909
  5. JARDIANCE [Concomitant]
     Active Substance: EMPAGLIFLOZIN
     Indication: DIABETES MELLITUS
     Dates: start: 201909
  6. METFORMIN [Concomitant]
     Active Substance: METFORMIN HYDROCHLORIDE
     Indication: DIABETES MELLITUS
     Route: 048
     Dates: start: 2013

REACTIONS (6)
  - Stress [Unknown]
  - Product taste abnormal [Unknown]
  - Product physical issue [Unknown]
  - Product odour abnormal [Unknown]
  - Blood pressure increased [Unknown]
  - Diabetes mellitus [Unknown]

NARRATIVE: CASE EVENT DATE: 201909
